FAERS Safety Report 20967373 (Version 2)
Quarter: 2022Q2

REPORT INFORMATION
  Report Type: Spontaneous
  Country: US (occurrence: US)
  Receive Date: 20220616
  Receipt Date: 20220629
  Transmission Date: 20220721
  Serious: No
  Sender: FDA-Public Use
  Company Number: US-BIOGEN-2019BI00811399

PATIENT
  Sex: Female

DRUGS (5)
  1. TECFIDERA [Suspect]
     Active Substance: DIMETHYL FUMARATE
     Indication: Multiple sclerosis
     Route: 048
     Dates: start: 2018
  2. TECFIDERA [Suspect]
     Active Substance: DIMETHYL FUMARATE
     Dosage: TAKING TECFIDERA 240 MG ONCE DAILY INSTEAD OF TWICE DAILY OUT OF HER OWN CHOICE
     Route: 048
     Dates: start: 2019
  3. TECFIDERA [Suspect]
     Active Substance: DIMETHYL FUMARATE
     Dosage: STARTING DOSE
     Route: 048
  4. TECFIDERA [Suspect]
     Active Substance: DIMETHYL FUMARATE
     Route: 065
     Dates: start: 20170329
  5. TECFIDERA [Suspect]
     Active Substance: DIMETHYL FUMARATE
     Dates: start: 2016

REACTIONS (5)
  - Intentional product misuse [Recovered/Resolved]
  - Multiple sclerosis [Not Recovered/Not Resolved]
  - Mental impairment [Unknown]
  - Visual acuity reduced [Unknown]
  - Pruritus [Unknown]
